FAERS Safety Report 9299903 (Version 1)
Quarter: 2013Q1

REPORT INFORMATION
  Report Type: Spontaneous
  Country: US (occurrence: None)
  Receive Date: 20121231
  Receipt Date: 20121231
  Transmission Date: 20140127
  Serious: Yes (Hospitalization, Other)
  Sender: FDA-Public Use
  Company Number: RB-45371-2012

PATIENT
  Age: 53 Year
  Sex: Male

DRUGS (3)
  1. SUBOXONE [Suspect]
     Indication: DRUG DEPENDENCE
     Route: 060
     Dates: start: 2010
  2. SUBOXONE [Suspect]
     Indication: DRUG DEPENDENCE
     Dosage: DOSE TAPERED TO 4 MG DAILY THEN STOPPED, SUBLINGUAL
     Route: 060
     Dates: start: 201204, end: 20120925
  3. VALIUM [Suspect]

REACTIONS (5)
  - Dyspnoea [None]
  - Chest pain [None]
  - Drug withdrawal syndrome [None]
  - Insomnia [None]
  - Decreased appetite [None]
